FAERS Safety Report 20702032 (Version 1)
Quarter: 2022Q2

REPORT INFORMATION
  Report Type: Spontaneous
  Country: US (occurrence: US)
  Receive Date: 20220412
  Receipt Date: 20220412
  Transmission Date: 20220721
  Serious: Yes (Life-Threatening)
  Sender: FDA-Public Use
  Company Number: US-Fresenius Kabi-FK202204268

PATIENT
  Age: 59 Year
  Sex: Male

DRUGS (1)
  1. HEPARIN SODIUM [Suspect]
     Active Substance: HEPARIN SODIUM
     Indication: Anticoagulant therapy
     Dosage: UNKNOWN
     Route: 065

REACTIONS (3)
  - Obstructive airways disorder [Recovered/Resolved]
  - Pulmonary haemorrhage [Recovered/Resolved]
  - Thrombosis [Recovered/Resolved]
